FAERS Safety Report 13285687 (Version 6)
Quarter: 2019Q3

REPORT INFORMATION
  Report Type: Report from Study
  Country: TW (occurrence: TW)
  Receive Date: 20170302
  Receipt Date: 20190922
  Transmission Date: 20191004
  Serious: Yes (Hospitalization)
  Sender: FDA-Public Use
  Company Number: TW-CELGENEUS-TWN-2016112341

PATIENT
  Age: 73 Year
  Sex: Female
  Weight: 57.6 kg

DRUGS (52)
  1. RITUXIMAB. [Suspect]
     Active Substance: RITUXIMAB
     Indication: DIFFUSE LARGE B-CELL LYMPHOMA
     Dosage: 375 MILLIGRAM/SQ. METER
     Route: 041
     Dates: start: 20161101, end: 20161101
  2. PREDNISONE. [Suspect]
     Active Substance: PREDNISONE
     Dosage: 80 MILLIGRAM
     Route: 041
     Dates: start: 201611
  3. PREGABALIN. [Concomitant]
     Active Substance: PREGABALIN
     Dosage: 300 MILLIGRAM
     Route: 048
     Dates: start: 20170206
  4. HYZAAR [Concomitant]
     Active Substance: HYDROCHLOROTHIAZIDE\LOSARTAN POTASSIUM
     Indication: HYPERTENSION
     Dosage: 112.5 MILLIGRAM
     Route: 048
     Dates: start: 20170103
  5. LINAGLIPTIN [Concomitant]
     Active Substance: LINAGLIPTIN
     Indication: PRODUCT USED FOR UNKNOWN INDICATION
     Dosage: 5 MILLIGRAM
     Route: 048
  6. CYCLOPHOSPHAMIDE. [Suspect]
     Active Substance: CYCLOPHOSPHAMIDE
     Dosage: 663 MILLIGRAM
     Route: 041
     Dates: start: 20170207
  7. VINCRISTINE [Suspect]
     Active Substance: VINCRISTINE
     Dosage: 1.4 MILLIGRAM/SQ. METER
     Route: 041
     Dates: start: 20170207, end: 20170207
  8. PREDNISONE. [Suspect]
     Active Substance: PREDNISONE
     Dosage: 80 MILLIGRAM
     Route: 041
     Dates: start: 20170131
  9. REPAGLINIDE. [Concomitant]
     Active Substance: REPAGLINIDE
     Indication: PRODUCT USED FOR UNKNOWN INDICATION
     Dosage: 3 MILLIGRAM
     Route: 048
  10. DOXORUBICIN [Suspect]
     Active Substance: DOXORUBICIN
     Dosage: 50 MILLIGRAM/SQ. METER
     Route: 041
     Dates: start: 20170104, end: 20170104
  11. VINCRISTINE [Suspect]
     Active Substance: VINCRISTINE
     Dosage: 1.4 MILLIGRAM/SQ. METER
     Route: 041
     Dates: start: 20170104, end: 20170104
  12. PREDNISONE. [Suspect]
     Active Substance: PREDNISONE
     Indication: DIFFUSE LARGE B-CELL LYMPHOMA
     Dosage: 100 MILLIGRAM
     Route: 048
     Dates: start: 20161102
  13. PREDNISONE. [Suspect]
     Active Substance: PREDNISONE
     Dosage: 100 MILLIGRAM
     Route: 048
     Dates: start: 20170104, end: 20170109
  14. LOSARTAN POTASSIUM. [Concomitant]
     Active Substance: LOSARTAN POTASSIUM
     Indication: HYPERTENSION
     Dosage: 50 MILLIGRAM
     Route: 048
     Dates: start: 20161008
  15. FOSAPREPITANT [Concomitant]
     Active Substance: FOSAPREPITANT
     Indication: PRODUCT USED FOR UNKNOWN INDICATION
     Route: 041
  16. ACETAMINOPHEN. [Concomitant]
     Active Substance: ACETAMINOPHEN
     Indication: BONE PAIN
     Dosage: 2000 MILLIGRAM
     Route: 048
     Dates: start: 20161109
  17. CORTISONE ACETATE. [Concomitant]
     Active Substance: CORTISONE ACETATE
     Indication: PRODUCT USED FOR UNKNOWN INDICATION
     Dosage: 50 MG
     Route: 065
  18. QUETIAPINE. [Concomitant]
     Active Substance: QUETIAPINE
     Indication: PRODUCT USED FOR UNKNOWN INDICATION
     Route: 048
  19. NEOMYCIN/TYROTHRICIN [Concomitant]
     Indication: PRODUCT USED FOR UNKNOWN INDICATION
     Route: 065
  20. RITUXIMAB. [Suspect]
     Active Substance: RITUXIMAB
     Route: 041
     Dates: start: 20170103, end: 20170103
  21. DOXORUBICIN [Suspect]
     Active Substance: DOXORUBICIN
     Route: 041
     Dates: start: 20170207, end: 20170207
  22. METHYLPREDNISONE [Concomitant]
     Active Substance: METHYLPREDNISOLONE
     Indication: DIFFUSE LARGE B-CELL LYMPHOMA
     Dosage: 80 MILLIGRAM
     Route: 048
     Dates: start: 20161101
  23. FLUROXENE [Concomitant]
     Active Substance: FLUROXENE
     Indication: PRODUCT USED FOR UNKNOWN INDICATION
     Dosage: 5 MILLIGRAM
     Route: 048
     Dates: start: 20161008
  24. COBAMAMIDE [Concomitant]
     Active Substance: COBAMAMIDE
     Dosage: 250 MILLIGRAM
     Route: 048
     Dates: start: 20161118
  25. FUROSEMIDE. [Concomitant]
     Active Substance: FUROSEMIDE
     Indication: PRODUCT USED FOR UNKNOWN INDICATION
     Dosage: 40 MILLIGRAM
     Route: 048
  26. CC-5013 [Suspect]
     Active Substance: LENALIDOMIDE
     Indication: DIFFUSE LARGE B-CELL LYMPHOMA
     Dosage: 15 MILLIGRAM
     Route: 048
     Dates: start: 20161101, end: 20161109
  27. CC-5013 [Suspect]
     Active Substance: LENALIDOMIDE
     Route: 048
     Dates: start: 20170206, end: 20170213
  28. RITUXIMAB. [Suspect]
     Active Substance: RITUXIMAB
     Route: 041
     Dates: start: 20170206, end: 20170206
  29. PREDNISONE. [Suspect]
     Active Substance: PREDNISONE
     Dosage: 80 MILLIGRAM
     Route: 041
     Dates: start: 20170206
  30. ACETAMINOPHEN. [Concomitant]
     Active Substance: ACETAMINOPHEN
     Indication: PYREXIA
     Dosage: 500 MG
     Route: 048
     Dates: start: 20170103
  31. FLURBIPROFEN. [Concomitant]
     Active Substance: FLURBIPROFEN
     Indication: HYPERSENSITIVITY
     Dosage: 40 MG
     Route: 065
     Dates: start: 20130415, end: 20160425
  32. TIZANIDINE. [Concomitant]
     Active Substance: TIZANIDINE
     Indication: SEIZURE
     Route: 065
     Dates: start: 20170113
  33. LEVOFLOXACIN. [Concomitant]
     Active Substance: LEVOFLOXACIN
     Indication: PRODUCT USED FOR UNKNOWN INDICATION
     Dosage: 500 MILLIGRAM
     Route: 048
  34. CYCLOPHOSPHAMIDE. [Suspect]
     Active Substance: CYCLOPHOSPHAMIDE
     Indication: DIFFUSE LARGE B-CELL LYMPHOMA
     Dosage: 1200 MILLIGRAM
     Route: 041
     Dates: start: 20161102, end: 20161102
  35. MAGNESIUM OXIDE. [Concomitant]
     Active Substance: MAGNESIUM OXIDE
     Indication: GASTRIC DISORDER
     Dosage: 1000 MILLIGRAM
     Route: 048
     Dates: start: 20161008, end: 20161103
  36. PEGFILGRASTIM [Concomitant]
     Active Substance: PEGFILGRASTIM
     Indication: PRODUCT USED FOR UNKNOWN INDICATION
     Route: 058
     Dates: start: 20161103
  37. COTRIMOXAZOLE [Concomitant]
     Active Substance: SULFAMETHOXAZOLE\TRIMETHOPRIM
     Indication: INFECTION PROPHYLAXIS
     Dosage: 480 MG
     Route: 048
     Dates: start: 20161128, end: 20170110
  38. COBAMAMIDE [Concomitant]
     Active Substance: COBAMAMIDE
     Indication: HYPOAESTHESIA
     Dosage: 480 MG
     Route: 048
     Dates: start: 20161128, end: 20170110
  39. PREGABALIN. [Concomitant]
     Active Substance: PREGABALIN
     Indication: NEUROPATHY PERIPHERAL
     Dosage: 300 MILLIGRAM
     Route: 048
     Dates: start: 20170206
  40. HYZAAR [Concomitant]
     Active Substance: HYDROCHLOROTHIAZIDE\LOSARTAN POTASSIUM
     Dosage: 112.5 MILLIGRAM
     Route: 048
  41. AMLODIPINE [Concomitant]
     Active Substance: AMLODIPINE BESYLATE
     Indication: PRODUCT USED FOR UNKNOWN INDICATION
     Dosage: 5 MILLIGRAM
     Route: 048
  42. VINCRISTINE [Suspect]
     Active Substance: VINCRISTINE
     Indication: DIFFUSE LARGE B-CELL LYMPHOMA
     Dosage: 2 MILLIGRAM/SQ. METER
     Route: 041
     Dates: start: 20161102, end: 20161102
  43. ACETYLCYSTEINE. [Concomitant]
     Active Substance: ACETYLCYSTEINE
     Indication: PRODUCT USED FOR UNKNOWN INDICATION
     Dosage: 1200 MILLIGRAM
     Route: 048
     Dates: start: 20161101, end: 20161108
  44. LOSARTAN POTASSIUM. [Concomitant]
     Active Substance: LOSARTAN POTASSIUM
     Dosage: VIAL
     Route: 065
     Dates: start: 20161008
  45. RALOXIFENE. [Concomitant]
     Active Substance: RALOXIFENE
     Indication: OSTEOPOROSIS PROPHYLAXIS
     Dosage: 60 MILLIGRAM
     Route: 048
     Dates: start: 20160108
  46. ACETAMINOPHEN. [Concomitant]
     Active Substance: ACETAMINOPHEN
     Dosage: 500 MG
     Route: 048
     Dates: start: 20170213
  47. ESOMEPRAZOLE. [Concomitant]
     Active Substance: ESOMEPRAZOLE MAGNESIUM
     Indication: PRODUCT USED FOR UNKNOWN INDICATION
     Dosage: 40 MILLIGRAM
     Route: 048
  48. CC-5013 [Suspect]
     Active Substance: LENALIDOMIDE
     Dosage: 15 MILLIGRAM
     Route: 048
     Dates: start: 20170103, end: 20170111
  49. DOXORUBICIN [Suspect]
     Active Substance: DOXORUBICIN
     Indication: DIFFUSE LARGE B-CELL LYMPHOMA
     Dosage: 50 MILLIGRAM/SQ. METER
     Route: 041
     Dates: start: 20161102, end: 20161102
  50. CYCLOPHOSPHAMIDE. [Suspect]
     Active Substance: CYCLOPHOSPHAMIDE
     Dosage: 663 MILLIGRAM
     Route: 041
     Dates: start: 20170104, end: 20170104
  51. PREDNISONE. [Suspect]
     Active Substance: PREDNISONE
     Route: 048
     Dates: start: 20170207, end: 20170210
  52. HYDROCORTISONE SODIUM SUCCINATE [Concomitant]
     Active Substance: HYDROCORTISONE SODIUM SUCCINATE
     Indication: PRODUCT USED FOR UNKNOWN INDICATION
     Dosage: 100 MG
     Route: 065

REACTIONS (9)
  - Thrombocytopenia [Recovered/Resolved]
  - Febrile neutropenia [Recovered/Resolved]
  - Thrombocytopenia [Recovered/Resolved]
  - Pneumonia [Recovered/Resolved]
  - Altered state of consciousness [Recovered/Resolved]
  - Neutropenia [Recovered/Resolved]
  - Stomatitis [Recovered/Resolved]
  - Thrombocytopenia [Recovered/Resolved]
  - Febrile neutropenia [Recovered/Resolved]

NARRATIVE: CASE EVENT DATE: 20161108
